FAERS Safety Report 7784480-X (Version None)
Quarter: 2011Q3

REPORT INFORMATION
  Report Type: 
  Country: None (occurrence: None)
  Receive Date: 20110928
  Receipt Date: 20110919
  Transmission Date: 20111222
  Serious: Yes (Hospitalization)
  Sender: FDA-Public Use
  Company Number: PHHY2011IT84147

PATIENT
  Sex: Female

DRUGS (3)
  1. IBUPROFEN [Suspect]
     Route: 065
  2. ACETYLSALICYLIC ACID SRT [Suspect]
     Route: 065
  3. ACETAMINOPHEN [Suspect]
     Route: 065

REACTIONS (1)
  - TOXICITY TO VARIOUS AGENTS [None]
